FAERS Safety Report 12589968 (Version 1)
Quarter: 2016Q3

REPORT INFORMATION
  Report Type: Report from Study
  Country: BR (occurrence: BR)
  Receive Date: 20160725
  Receipt Date: 20160725
  Transmission Date: 20161109
  Serious: Yes (Life-Threatening, Other)
  Sender: FDA-Public Use
  Company Number: PHHY2016BR098887

PATIENT
  Sex: Female
  Weight: 89 kg

DRUGS (5)
  1. METFORMIN [Suspect]
     Active Substance: METFORMIN HYDROCHLORIDE
     Indication: PRODUCT USED FOR UNKNOWN INDICATION
     Route: 065
  2. GALVUS MET [Suspect]
     Active Substance: METFORMIN HYDROCHLORIDE\VILDAGLIPTIN
     Indication: DIABETES MELLITUS
     Dosage: 1 DF (1000 MG OF METFORMIN/ 50 MG OF VILDAGLIPTIN), EVERY 12 HOURS
     Route: 048
  3. DUO-TRAVATAN [Suspect]
     Active Substance: TIMOLOL MALEATE\TRAVOPROST
     Indication: GLAUCOMA
     Dosage: 0.04 MG (04/6.8/5.0 MG), QD (ONE DROP AT NIGHT)
     Route: 047
  4. INSULIN [Suspect]
     Active Substance: INSULIN NOS
     Indication: PRODUCT USED FOR UNKNOWN INDICATION
     Route: 065
  5. LUMIGAN [Suspect]
     Active Substance: BIMATOPROST
     Indication: PRODUCT USED FOR UNKNOWN INDICATION
     Route: 065

REACTIONS (12)
  - Blood pressure increased [Unknown]
  - Diabetic coma [Unknown]
  - Intraocular pressure increased [Unknown]
  - Memory impairment [Not Recovered/Not Resolved]
  - Headache [Unknown]
  - Pollakiuria [Unknown]
  - Asthenia [Unknown]
  - Sluggishness [Unknown]
  - Eye pain [Unknown]
  - Malaise [Unknown]
  - Muscle twitching [Unknown]
  - Blood glucose increased [Unknown]
